FAERS Safety Report 14540504 (Version 3)
Quarter: 2018Q2

REPORT INFORMATION
  Report Type: Spontaneous
  Country: JP (occurrence: JP)
  Receive Date: 20180216
  Receipt Date: 20180525
  Transmission Date: 20180711
  Serious: Yes (Disabling)
  Sender: FDA-Public Use
  Company Number: JP-009507513-1802JPN007408

PATIENT
  Age: 64 Year
  Sex: Female
  Weight: 59 kg

DRUGS (11)
  1. ROCURONIUM BROMIDE. [Suspect]
     Active Substance: ROCURONIUM BROMIDE
     Indication: GENERAL ANAESTHESIA
     Dosage: 0.7 MG/KG, UNK
     Route: 042
  2. ROPIVACAINE [Suspect]
     Active Substance: ROPIVACAINE
     Indication: POSTOPERATIVE ANALGESIA
     Dosage: 0.2 %, UNK
     Route: 008
  3. ROCURONIUM BROMIDE. [Suspect]
     Active Substance: ROCURONIUM BROMIDE
     Dosage: 10 MG, QH
     Route: 042
  4. DESFLURANE. [Suspect]
     Active Substance: DESFLURANE
     Indication: GENERAL ANAESTHESIA
     Dosage: UNK
  5. ROPIVACAINE [Suspect]
     Active Substance: ROPIVACAINE
     Indication: PERIOPERATIVE ANALGESIA
     Dosage: 0.25 %, 3-4 ML/H
     Route: 008
  6. SUGAMMADEX SODIUM [Suspect]
     Active Substance: SUGAMMADEX SODIUM
     Indication: NEUROMUSCULAR BLOCKADE REVERSAL
     Dosage: 2 MG/KG, UNK
     Route: 042
  7. REMIFENTANIL HYDROCHLORIDE. [Suspect]
     Active Substance: REMIFENTANIL HYDROCHLORIDE
     Indication: GENERAL ANAESTHESIA
     Dosage: 0.25 MICRO-G/KG/MIN
     Route: 042
  8. DESFLURANE. [Suspect]
     Active Substance: DESFLURANE
     Dosage: 4 %, UNK
  9. FENTANYL. [Suspect]
     Active Substance: FENTANYL
     Indication: POSTOPERATIVE ANALGESIA
     Dosage: 3 MICRO-G/ML, UNK
     Route: 008
  10. PROPOFOL. [Suspect]
     Active Substance: PROPOFOL
     Indication: GENERAL ANAESTHESIA
     Dosage: 1 MG/KG, UNK
     Route: 042
  11. REMIFENTANIL HYDROCHLORIDE. [Suspect]
     Active Substance: REMIFENTANIL HYDROCHLORIDE
     Dosage: 0.1 MICRO-G/KG/MIN
     Route: 042

REACTIONS (1)
  - Head titubation [Unknown]
